FAERS Safety Report 5591967-7 (Version None)
Quarter: 2008Q1

REPORT INFORMATION
  Report Type: 
  Country: None (occurrence: None)
  Receive Date: 20080115
  Receipt Date: 20080108
  Transmission Date: 20080703
  Serious: Yes (Death)
  Sender: FDA-Public Use
  Company Number: TR-ELI_LILLY_AND_COMPANY-TR200801001503

PATIENT
  Age: 81 Year
  Sex: Male

DRUGS (2)
  1. HUMULIN N [Suspect]
     Dosage: UNK, UNKNOWN
     Route: 065
     Dates: start: 20030101
  2. HUMULIN R [Suspect]
     Dosage: UNK, UNKNOWN
     Route: 065
     Dates: start: 20030101

REACTIONS (4)
  - ARTERIOSPASM CORONARY [None]
  - DEATH [None]
  - DYSPNOEA [None]
  - MALAISE [None]
